FAERS Safety Report 14018431 (Version 1)
Quarter: 2017Q3

REPORT INFORMATION
  Report Type: Spontaneous
  Country: US (occurrence: US)
  Receive Date: 20170928
  Receipt Date: 20170928
  Transmission Date: 20171128
  Serious: No
  Sender: FDA-Public Use
  Company Number: US-TEVA-2015-23176

PATIENT
  Sex: Female
  Weight: 66.28 kg

DRUGS (1)
  1. GABAPENTIN. [Suspect]
     Active Substance: GABAPENTIN
     Indication: VULVOVAGINAL PAIN
     Dosage: UNK UNK, UNKNOWN
     Route: 048

REACTIONS (3)
  - Muscular weakness [Unknown]
  - Drug ineffective [Unknown]
  - Gait disturbance [Unknown]
